FAERS Safety Report 21291853 (Version 1)
Quarter: 2022Q3

REPORT INFORMATION
  Report Type: Spontaneous
  Country: IR (occurrence: IR)
  Receive Date: 20220903
  Receipt Date: 20220903
  Transmission Date: 20221026
  Serious: Yes (Other)
  Sender: FDA-Public Use
  Company Number: IR-MLMSERVICE-20220823-3744732-1

PATIENT
  Age: 84 Year
  Sex: Male

DRUGS (7)
  1. FLUOROURACIL [Suspect]
     Active Substance: FLUOROURACIL
     Indication: Metastases to liver
     Dosage: CONTINUOUS INFUSION FOR 46H, THREE SESSIONS WITH 14-DAY INTERVAL BETWEEN SESSIONS
  2. FLUOROURACIL [Suspect]
     Active Substance: FLUOROURACIL
     Indication: Gastric cancer
  3. OXALIPLATIN [Suspect]
     Active Substance: OXALIPLATIN
     Indication: Gastric cancer
     Dosage: CONTINUOUS INFUSION FOR 46H, THREE SESSIONS WITH 14-DAY INTERVAL BETWEEN SESSIONS
  4. OXALIPLATIN [Suspect]
     Active Substance: OXALIPLATIN
     Indication: Metastases to liver
  5. LEUCOVORIN [Suspect]
     Active Substance: LEUCOVORIN
     Indication: Metastases to liver
     Dosage: CONTINUOUS INFUSION FOR 46H, THREE SESSIONS WITH 14-DAY INTERVAL BETWEEN SESSIONS
  6. LEUCOVORIN [Suspect]
     Active Substance: LEUCOVORIN
     Indication: Gastric cancer
  7. METOPROLOL [Concomitant]
     Active Substance: METOPROLOL
     Indication: Hypertension

REACTIONS (2)
  - Cutaneous vasculitis [Recovering/Resolving]
  - Pyoderma gangrenosum [Recovering/Resolving]
